FAERS Safety Report 8162812-0 (Version None)
Quarter: 2012Q1

REPORT INFORMATION
  Report Type: 
  Country: None (occurrence: None)
  Receive Date: 20120224
  Receipt Date: 20120222
  Transmission Date: 20120608
  Serious: Yes (Life-Threatening, Hospitalization, Other)
  Sender: FDA-Public Use
  Company Number: US-PFIZER INC-2009186784

PATIENT
  Sex: Female
  Weight: 65.76 kg

DRUGS (12)
  1. PERINORM [Concomitant]
     Indication: ABDOMINAL DISCOMFORT
     Dosage: UNK
  2. ASPIRIN [Concomitant]
     Indication: MYOCARDIAL INFARCTION
     Dosage: 81 MG, 1X/DAY
  3. FLEXERIL [Concomitant]
     Indication: BACK DISORDER
     Dosage: UNK
  4. AMITRIPTYLINE [Concomitant]
     Indication: DEPRESSION
     Dosage: 25 MG, 1X/DAY AT NIGHT
  5. LIPITOR [Suspect]
     Indication: BLOOD CHOLESTEROL ABNORMAL
  6. CARVEDILOL [Concomitant]
     Indication: HYPERTENSION
     Dosage: 6.25 MG, 2X/DAY
  7. LIPITOR [Suspect]
     Indication: BLOOD CHOLESTEROL INCREASED
     Dosage: 20 MG, 1X/DAY
     Route: 048
  8. NICOTINE [Concomitant]
     Dosage: UNK
  9. FLEXERIL [Concomitant]
     Indication: MYALGIA
  10. LIBRIUM [Concomitant]
     Indication: ANXIETY
     Dosage: 25 MG, 1X/DAY
     Dates: start: 19820101
  11. CHLORDIAZEPOXIDE [Concomitant]
     Dosage: 25 MG, 1X/DAY
  12. BENICAR [Concomitant]
     Indication: HYPERTENSION
     Dosage: 20 MG, 1X/DAY

REACTIONS (8)
  - FATIGUE [None]
  - ANXIETY [None]
  - DYSPNOEA [None]
  - CORONARY ARTERY OCCLUSION [None]
  - LOW DENSITY LIPOPROTEIN ABNORMAL [None]
  - MYOCARDIAL INFARCTION [None]
  - STRESS [None]
  - HEART RATE IRREGULAR [None]
